FAERS Safety Report 5395550-8 (Version None)
Quarter: 2007Q3

REPORT INFORMATION
  Report Type: 
  Country: None (occurrence: None)
  Receive Date: 20070718
  Receipt Date: 20070111
  Transmission Date: 20080115
  Serious: Yes (Hospitalization, Other)
  Sender: FDA-Public Use
  Company Number: 2006075469

PATIENT
  Age: 59 Year
  Sex: Female
  Weight: 100.7 kg

DRUGS (5)
  1. CELEBREX [Suspect]
     Indication: ARTHRITIS
     Dosage: 400 MG (200 MG,FREQUENCY: BID),ORAL
     Route: 048
     Dates: start: 20010504, end: 20040401
  2. VIOXX [Suspect]
     Indication: ARTHRITIS
     Dosage: 25 MG (25 MG, FREQUENCY: BID), ORAL
     Route: 048
     Dates: start: 20010504, end: 20040724
  3. ACTOS [Concomitant]
  4. LIPITOR [Concomitant]
  5. BENICAR HCT [Concomitant]

REACTIONS (1)
  - CEREBROVASCULAR ACCIDENT [None]
